FAERS Safety Report 23603097 (Version 5)
Quarter: 2024Q2

REPORT INFORMATION
  Report Type: Spontaneous
  Country: US (occurrence: US)
  Receive Date: 20240306
  Receipt Date: 20240527
  Transmission Date: 20240716
  Serious: No
  Sender: FDA-Public Use
  Company Number: US-GLAXOSMITHKLINE-US2024AMR026303

PATIENT
  Age: 61 Year
  Sex: Female
  Weight: 63.492 kg

DRUGS (4)
  1. ZEJULA [Suspect]
     Active Substance: NIRAPARIB
     Indication: Ovarian cancer
     Dosage: 100 MG, QD
     Route: 048
     Dates: start: 20240225
  2. SYNTHROID [Concomitant]
     Active Substance: LEVOTHYROXINE SODIUM
     Indication: Hypothyroidism
     Dosage: UNK
  3. SYNTHROID [Concomitant]
     Active Substance: LEVOTHYROXINE SODIUM
     Dosage: UNK
  4. BUPIVACAINE [Concomitant]
     Active Substance: BUPIVACAINE
     Indication: Product used for unknown indication
     Dosage: UNK

REACTIONS (26)
  - Chills [Recovered/Resolved]
  - Somnolence [Recovering/Resolving]
  - Abnormal dreams [Recovering/Resolving]
  - Nausea [Recovering/Resolving]
  - Dysgeusia [Recovering/Resolving]
  - Sleep disorder [Unknown]
  - Middle insomnia [Recovering/Resolving]
  - Diarrhoea [Unknown]
  - Bowel movement irregularity [Unknown]
  - Chromaturia [Unknown]
  - Feeling of relaxation [Unknown]
  - Fatigue [Recovering/Resolving]
  - Insomnia [Recovering/Resolving]
  - Arthralgia [Recovering/Resolving]
  - Loss of personal independence in daily activities [Recovering/Resolving]
  - White blood cell count decreased [Recovering/Resolving]
  - Dyspepsia [Recovering/Resolving]
  - Fall [Unknown]
  - Pain [Unknown]
  - Carbohydrate antigen 125 increased [Unknown]
  - Blood sodium decreased [Unknown]
  - Platelet disorder [Unknown]
  - Laboratory test abnormal [Unknown]
  - Brain fog [Unknown]
  - Rotator cuff syndrome [Unknown]
  - Incorrect dose administered [Unknown]

NARRATIVE: CASE EVENT DATE: 20240201
